FAERS Safety Report 8945866 (Version 1)
Quarter: 2012Q4

REPORT INFORMATION
  Report Type: 
  Country: ID (occurrence: ID)
  Receive Date: 20121205
  Receipt Date: 20121205
  Transmission Date: 20130627
  Serious: Yes (Death)
  Sender: FDA-Public Use
  Company Number: PHHY2012ID110817

PATIENT
  Sex: Female

DRUGS (1)
  1. GLIVEC [Suspect]
     Indication: CHRONIC MYELOID LEUKAEMIA
     Dosage: 400 mg, QD
     Route: 048
     Dates: start: 2011

REACTIONS (2)
  - Splenomegaly [Fatal]
  - Abdominal pain [Fatal]
